FAERS Safety Report 20441557 (Version 2)
Quarter: 2022Q1

REPORT INFORMATION
  Report Type: Spontaneous
  Country: US (occurrence: US)
  Receive Date: 20220208
  Receipt Date: 20220321
  Transmission Date: 20220424
  Serious: Yes (Hospitalization, Other)
  Sender: FDA-Public Use
  Company Number: US-HORIZON THERAPEUTICS-HZN-2022-001002

PATIENT

DRUGS (24)
  1. KRYSTEXXA [Suspect]
     Active Substance: PEGLOTICASE
     Indication: Gouty tophus
     Dosage: 1ST INFUSION
     Route: 042
     Dates: start: 20210715
  2. KRYSTEXXA [Suspect]
     Active Substance: PEGLOTICASE
     Dosage: 2ND INFUSION
     Route: 042
     Dates: start: 20210729
  3. KRYSTEXXA [Suspect]
     Active Substance: PEGLOTICASE
     Dosage: 3RD INFUSION
     Route: 042
     Dates: start: 20210813
  4. KRYSTEXXA [Suspect]
     Active Substance: PEGLOTICASE
     Dosage: 4TH INFUSION
     Route: 042
     Dates: start: 20210827
  5. KRYSTEXXA [Suspect]
     Active Substance: PEGLOTICASE
     Dosage: 5TH INFUSION
     Route: 042
     Dates: start: 20210910
  6. KRYSTEXXA [Suspect]
     Active Substance: PEGLOTICASE
     Dosage: 6TH INFUSION
     Route: 042
     Dates: start: 20210924
  7. KRYSTEXXA [Suspect]
     Active Substance: PEGLOTICASE
     Dosage: 7TH INFUSION
     Route: 042
     Dates: start: 20211008
  8. KRYSTEXXA [Suspect]
     Active Substance: PEGLOTICASE
     Dosage: 8TH INFUSION
     Route: 042
     Dates: start: 20211022
  9. KRYSTEXXA [Suspect]
     Active Substance: PEGLOTICASE
     Dosage: 9TH INFUSION
     Route: 042
     Dates: start: 20211112
  10. KRYSTEXXA [Suspect]
     Active Substance: PEGLOTICASE
     Dosage: 10TH INFUSION
     Route: 042
     Dates: start: 20211203
  11. KRYSTEXXA [Suspect]
     Active Substance: PEGLOTICASE
     Dosage: 11TH INFUSION
     Route: 042
     Dates: start: 20211217
  12. KRYSTEXXA [Suspect]
     Active Substance: PEGLOTICASE
     Dosage: 12TH INFUSION
     Route: 042
     Dates: start: 20220107
  13. KRYSTEXXA [Suspect]
     Active Substance: PEGLOTICASE
     Dosage: 13TH INFUSION
     Route: 042
     Dates: start: 20220121
  14. KRYSTEXXA [Suspect]
     Active Substance: PEGLOTICASE
     Dosage: 14TH INFUSION
     Route: 042
     Dates: start: 20220204
  15. KRYSTEXXA [Suspect]
     Active Substance: PEGLOTICASE
     Dosage: 15TH INFUSION
     Route: 042
     Dates: start: 20220218
  16. KRYSTEXXA [Suspect]
     Active Substance: PEGLOTICASE
     Dosage: 16TH INFUSION
     Route: 042
     Dates: start: 20220304
  17. COLCHICINE [Concomitant]
     Active Substance: COLCHICINE
     Indication: Gout
     Dosage: 0.6 MG, QD
     Route: 065
  18. EPIPEN [Concomitant]
     Active Substance: EPINEPHRINE
     Indication: Anaphylaxis prophylaxis
     Dosage: 0.3 ML, SOLUTION AUTO-INJECTOR, PRN
     Route: 065
  19. METOPROLOL TARTRATE [Concomitant]
     Active Substance: METOPROLOL TARTRATE
     Indication: Hypertension
     Dosage: 50 MG, BID, 1 TABLET WITH FOOD
     Route: 048
  20. FOLIC ACID [Concomitant]
     Active Substance: FOLIC ACID
     Dosage: 1 MG, QD
     Route: 065
  21. PLAVIX [Concomitant]
     Active Substance: CLOPIDOGREL BISULFATE
     Indication: Anticoagulant therapy
     Dosage: 75 MG, QD
     Route: 065
  22. ASPIRIN [Concomitant]
     Active Substance: ASPIRIN
     Indication: Anticoagulant therapy
     Dosage: 81 MG, QD
     Route: 065
  23. PREDNISONE [Concomitant]
     Active Substance: PREDNISONE
     Indication: Antiinflammatory therapy
     Dosage: 5 MG, QD
     Route: 048
  24. METHOTREXATE [Concomitant]
     Active Substance: METHOTREXATE
     Indication: Immunosuppressant drug therapy
     Dosage: 15 MG, WEEKLY
     Route: 065

REACTIONS (3)
  - Therapeutic response shortened [Unknown]
  - Transient ischaemic attack [Unknown]
  - Inappropriate schedule of product administration [Unknown]
